FAERS Safety Report 11531154 (Version 1)
Quarter: 2015Q3

REPORT INFORMATION
  Report Type: Spontaneous
  Country: US (occurrence: US)
  Receive Date: 20150903
  Receipt Date: 20150903
  Transmission Date: 20151125
  Serious: No
  Sender: FDA-Public Use
  Company Number: US-ELI_LILLY_AND_COMPANY-US201210001825

PATIENT
  Age: 72 Year
  Sex: Female

DRUGS (6)
  1. CYMBALTA [Suspect]
     Active Substance: DULOXETINE HYDROCHLORIDE
     Dosage: 30 MG, EVERY OTHER DAY
     Route: 065
     Dates: start: 201306
  2. CYMBALTA [Suspect]
     Active Substance: DULOXETINE HYDROCHLORIDE
     Indication: BACK PAIN
     Dosage: 30 MG, QD
     Route: 065
     Dates: start: 201208, end: 201306
  3. CALCIUM MAGNESIUM [Concomitant]
     Active Substance: CALCIUM\MAGNESIUM
     Dosage: UNK, UNKNOWN
     Route: 048
  4. ZINC [Concomitant]
     Active Substance: ZINC\ZINC CHLORIDE
     Dosage: UNK, UNKNOWN
     Route: 065
  5. CYMBALTA [Suspect]
     Active Substance: DULOXETINE HYDROCHLORIDE
     Dosage: 30 MG, EVERY THREE DAYS
     Route: 065
     Dates: end: 201401
  6. GLUCOSAMINE SULFATE [Concomitant]
     Active Substance: GLUCOSAMINE SULFATE
     Dosage: UNK, UNKNOWN
     Route: 065

REACTIONS (17)
  - Gastrointestinal hypomotility [Unknown]
  - Decreased appetite [Unknown]
  - Muscle rigidity [Unknown]
  - Oral pain [Not Recovered/Not Resolved]
  - Dysgeusia [Unknown]
  - Headache [Unknown]
  - Depression [Unknown]
  - Visual impairment [Unknown]
  - Drug withdrawal syndrome [Unknown]
  - Paraesthesia [Unknown]
  - Hyperchlorhydria [Unknown]
  - Balance disorder [Not Recovered/Not Resolved]
  - Parosmia [Unknown]
  - Arthralgia [Unknown]
  - Dry mouth [Not Recovered/Not Resolved]
  - Cough [Unknown]
  - Dizziness [Not Recovered/Not Resolved]

NARRATIVE: CASE EVENT DATE: 201306
